FAERS Safety Report 8417628-4 (Version None)
Quarter: 2012Q2

REPORT INFORMATION
  Report Type: 
  Country: None (occurrence: None)
  Receive Date: 20120606
  Receipt Date: 20120604
  Transmission Date: 20120825
  Serious: Yes (Hospitalization)
  Sender: FDA-Public Use
  Company Number: US-GILEAD-2012-0055957

PATIENT
  Sex: Female

DRUGS (4)
  1. LETAIRIS [Suspect]
     Indication: DIASTOLIC DYSFUNCTION
  2. LETAIRIS [Suspect]
     Indication: PULMONARY HYPERTENSION
     Dosage: 10 MG, UNK
     Route: 048
     Dates: start: 20120228
  3. LETAIRIS [Suspect]
     Indication: CARDIAC FAILURE
  4. MORPHINE [Suspect]

REACTIONS (2)
  - WITHDRAWAL SYNDROME [None]
  - RESPIRATORY FAILURE [None]
